FAERS Safety Report 17401582 (Version 1)
Quarter: 2020Q3

REPORT INFORMATION
  Report Type: Report from Study
  Country: MY (occurrence: MY)
  Receive Date: 20200203
  Receipt Date: 20200203
  Transmission Date: 20201105
  Serious: Yes (Hospitalization)
  Sender: FDA-Public Use
  Company Number: MY-ALEXION PHARMACEUTICALS INC.-A201919305

PATIENT
  Age: 33 Year
  Sex: Male
  Weight: 57 kg

DRUGS (5)
  1. RAVULIZUMAB. [Suspect]
     Active Substance: RAVULIZUMAB
     Indication: PAROXYSMAL NOCTURNAL HAEMOGLOBINURIA
     Dosage: 2400 MG, UNK
     Route: 042
     Dates: start: 20170628
  2. ASPIRIN                            /00002701/ [Concomitant]
     Active Substance: ASPIRIN
     Indication: THROMBOSIS PROPHYLAXIS
     Dosage: 75 MG, QD
     Route: 048
     Dates: start: 20170706
  3. RAVULIZUMAB. [Suspect]
     Active Substance: RAVULIZUMAB
     Dosage: 3300 MG, UNK
     Route: 042
     Dates: start: 20191029
  4. PENICILLIN V                       /00001801/ [Concomitant]
     Active Substance: PENICILLIN V
     Indication: PROPHYLAXIS
     Dosage: 500 MG, BID
     Route: 048
     Dates: start: 20170628
  5. FOLATE [Concomitant]
     Active Substance: FOLATE SODIUM
     Indication: APLASTIC ANAEMIA
     Dosage: 5 MG, QD
     Route: 048
     Dates: start: 20160712

REACTIONS (1)
  - Pneumonia [Recovered/Resolved]

NARRATIVE: CASE EVENT DATE: 20191213
